FAERS Safety Report 12190679 (Version 1)
Quarter: 2016Q1

REPORT INFORMATION
  Report Type: Spontaneous
  Country: PL (occurrence: PL)
  Receive Date: 20160318
  Receipt Date: 20160318
  Transmission Date: 20160526
  Serious: Yes (Hospitalization, Other)
  Sender: FDA-Public Use
  Company Number: PL-GLAXOSMITHKLINE-PL2016035236

PATIENT
  Age: 2 Month
  Sex: Female
  Weight: 5.32 kg

DRUGS (2)
  1. ZINACEF [Suspect]
     Active Substance: CEFUROXIME SODIUM
     Dosage: 150 MG, TID
     Route: 042
     Dates: start: 20141206, end: 20141215
  2. LAKCID [Concomitant]

REACTIONS (1)
  - Diarrhoea haemorrhagic [Recovered/Resolved]

NARRATIVE: CASE EVENT DATE: 20141212
